FAERS Safety Report 23631119 (Version 1)
Quarter: 2024Q1

REPORT INFORMATION
  Report Type: Spontaneous
  Country: GB (occurrence: GB)
  Receive Date: 20240314
  Receipt Date: 20240314
  Transmission Date: 20240409
  Serious: Yes (Other)
  Sender: FDA-Public Use
  Company Number: None

PATIENT

DRUGS (3)
  1. ATORVASTATIN [Suspect]
     Active Substance: ATORVASTATIN
     Indication: Blood cholesterol increased
     Dosage: 80MG ONCE A DAY IN MORNING
     Route: 065
     Dates: start: 20230401, end: 20231001
  2. ATORVASTATIN [Suspect]
     Active Substance: ATORVASTATIN
     Route: 065
  3. CLOPIDOGREL [Concomitant]
     Active Substance: CLOPIDOGREL BISULFATE
     Indication: Cerebrovascular accident
     Route: 065
     Dates: start: 20221012

REACTIONS (4)
  - Endoscopic swallowing evaluation [Recovered/Resolved with Sequelae]
  - Dysphagia [Unknown]
  - Dyspepsia [Unknown]
  - Myalgia [Unknown]

NARRATIVE: CASE EVENT DATE: 20230601
